FAERS Safety Report 9462390 (Version 1)
Quarter: 2013Q3

REPORT INFORMATION
  Report Type: Report from Study
  Country: US (occurrence: US)
  Receive Date: 20130816
  Receipt Date: 20130816
  Transmission Date: 20140515
  Serious: Yes (Hospitalization, Other)
  Sender: FDA-Public Use
  Company Number: US-ABBOTT-13P-163-1130250-00

PATIENT
  Age: 78 Year
  Sex: Female
  Weight: 69.01 kg

DRUGS (1)
  1. HUMIRA [Suspect]
     Indication: RHEUMATOID ARTHRITIS
     Route: 058
     Dates: start: 200709, end: 200801

REACTIONS (5)
  - Stent placement [Unknown]
  - Basal cell carcinoma [Unknown]
  - Myocardial infarction [Unknown]
  - Cataract [Unknown]
  - Cataract [Unknown]
